FAERS Safety Report 7866702-X (Version None)
Quarter: 2011Q4

REPORT INFORMATION
  Report Type: 
  Country: None (occurrence: None)
  Receive Date: 20111028
  Receipt Date: 20110803
  Transmission Date: 20120403
  Serious: No
  Sender: FDA-Public Use
  Company Number: US-GLAXOSMITHKLINE-A0939539A

PATIENT
  Age: 79 Year
  Sex: Male

DRUGS (8)
  1. LIPITOR [Concomitant]
  2. GLYBURIDE [Concomitant]
  3. ALTACE [Concomitant]
  4. CALCIUM CARBONATE [Concomitant]
  5. METFORMIN HCL [Concomitant]
  6. ISOBIDE [Concomitant]
  7. ADVAIR DISKUS 100/50 [Suspect]
     Indication: DYSPNOEA
     Dosage: 1PUFF TWICE PER DAY
     Route: 055
     Dates: start: 20110729
  8. ASPIRIN [Concomitant]

REACTIONS (1)
  - DYSPHONIA [None]
